FAERS Safety Report 9230600 (Version 1)
Quarter: 2013Q2

REPORT INFORMATION
  Report Type: Spontaneous
  Country: DE (occurrence: None)
  Receive Date: 20130411
  Receipt Date: 20130411
  Transmission Date: 20140414
  Serious: Yes (Life-Threatening, Hospitalization, Other)
  Sender: FDA-Public Use
  Company Number: GER/GER/13/0028921

PATIENT
  Sex: Male
  Weight: 1.6 kg

DRUGS (1)
  1. CITALOPRAM (CITALOPRAM) [Suspect]
     Indication: PRODUCT USED FOR UNKNOWN INDICATION
     Route: 064
     Dates: start: 2010

REACTIONS (5)
  - Premature baby [None]
  - Maternal drugs affecting foetus [None]
  - Apnoea neonatal [None]
  - Bradycardia neonatal [None]
  - Pulmonary hypertension [None]
